FAERS Safety Report 4790102-2 (Version None)
Quarter: 2005Q4

REPORT INFORMATION
  Report Type: 
  Country: None (occurrence: None)
  Receive Date: 20051005
  Receipt Date: 20051005
  Transmission Date: 20060501
  Serious: Yes (Death)
  Sender: FDA-Public Use
  Company Number: None

PATIENT
  Age: 53 Year
  Sex: Male
  Weight: 76 kg

DRUGS (2)
  1. CEFTAZIDIME [Suspect]
     Indication: PNEUMONIA
     Dosage: ONE GM Q 8 HOURS IVPB
     Route: 042
     Dates: start: 20050621, end: 20050712
  2. CIPROFLOXACIN [Concomitant]

REACTIONS (5)
  - FEBRILE NEUTROPENIA [None]
  - PANCYTOPENIA [None]
  - PNEUMONIA [None]
  - RESPIRATORY FAILURE [None]
  - SEPTIC SHOCK [None]
